FAERS Safety Report 5577667-8 (Version None)
Quarter: 2007Q4

REPORT INFORMATION
  Report Type: 
  Country: None (occurrence: None)
  Receive Date: 20071231
  Receipt Date: 20071226
  Transmission Date: 20080405
  Serious: Yes (Hospitalization, Other)
  Sender: FDA-Public Use
  Company Number: PHRM2007FR02887

PATIENT
  Age: 87 Year
  Sex: Female

DRUGS (9)
  1. CACIT D3 [Concomitant]
     Dosage: 1 DF, QD
  2. MOVICOL [Concomitant]
     Dosage: 2 DF/DAY
  3. DIPROSONE [Concomitant]
     Dosage: 2 APPLICATIONS/DAY
  4. LACRIGEL [Concomitant]
     Dosage: 1 DRP, BID
  5. IMOVANE [Concomitant]
     Indication: SLEEP DISORDER
     Dosage: 3.75 MG, QD
     Route: 048
     Dates: end: 20060215
  6. ACTONEL [Concomitant]
     Indication: OSTEOPOROSIS
     Dosage: 35 MG, QW
     Route: 048
     Dates: end: 20060215
  7. DOLIPRANE [Concomitant]
     Indication: PAIN IN EXTREMITY
     Dosage: 1 G, QID
     Route: 048
  8. DRIPTANE [Concomitant]
     Dosage: 5 MG, BID
     Route: 048
     Dates: end: 20060215
  9. TRILEPTAL [Suspect]
     Indication: EPILEPSY
     Dosage: 300 MG, BID
     Route: 048
     Dates: start: 20010601, end: 20060215

REACTIONS (20)
  - BLOOD OSMOLARITY DECREASED [None]
  - CEREBRAL ATROPHY [None]
  - COMPUTERISED TOMOGRAM ABNORMAL [None]
  - EPILEPSY [None]
  - FALL [None]
  - FLUID INTAKE RESTRICTION [None]
  - GLASGOW COMA SCALE ABNORMAL [None]
  - GRAND MAL CONVULSION [None]
  - HEAD INJURY [None]
  - HEART RATE INCREASED [None]
  - HEMIPARESIS [None]
  - HYPERTENSION [None]
  - HYPONATRAEMIA [None]
  - INAPPROPRIATE ANTIDIURETIC HORMONE SECRETION [None]
  - INTUBATION [None]
  - MECHANICAL VENTILATION [None]
  - SOMNOLENCE [None]
  - STATUS EPILEPTICUS [None]
  - URINE OSMOLARITY INCREASED [None]
  - URINE SODIUM INCREASED [None]
